FAERS Safety Report 25497646 (Version 1)
Quarter: 2025Q3

REPORT INFORMATION
  Report Type: Spontaneous
  Country: TH (occurrence: TH)
  Receive Date: 20250701
  Receipt Date: 20250701
  Transmission Date: 20251021
  Serious: Yes (Death)
  Sender: MERCK SHARP & DOHME LLC
  Company Number: TH-009507513-1570331

PATIENT
  Age: 68 Year
  Sex: Female
  Weight: 40 kg

DRUGS (3)
  1. KEYTRUDA [Suspect]
     Active Substance: PEMBROLIZUMAB
     Indication: Non-small cell lung cancer metastatic
     Dosage: DOSE DESCRIPTION : 100 MILLIGRAM, Q3W?DAILY DOSE : 4.7 MILLIGRAM?REGIMEN DOSE : 100  MILLIGRAM
     Route: 042
     Dates: start: 20240821, end: 20240821
  2. KEYTRUDA [Suspect]
     Active Substance: PEMBROLIZUMAB
     Indication: Non-small cell lung cancer metastatic
     Dosage: DOSE DESCRIPTION : 100 MILLIGRAM, Q3W?DAILY DOSE : 4.7 MILLIGRAM?REGIMEN DOSE : 100  MILLIGRAM
     Route: 042
     Dates: start: 20240916, end: 20240916
  3. KEYTRUDA [Suspect]
     Active Substance: PEMBROLIZUMAB
     Indication: Non-small cell lung cancer metastatic
     Route: 042
     Dates: start: 2024, end: 20241216

REACTIONS (3)
  - Death [Fatal]
  - Incorrect dose administered [Unknown]
  - Inappropriate schedule of product administration [Unknown]

NARRATIVE: CASE EVENT DATE: 20240821
